FAERS Safety Report 13322415 (Version 3)
Quarter: 2017Q3

REPORT INFORMATION
  Report Type: Spontaneous
  Country: US (occurrence: US)
  Receive Date: 20170309
  Receipt Date: 20170705
  Transmission Date: 20171127
  Serious: No
  Sender: FDA-Public Use
  Company Number: US-PFIZER INC-2017099476

PATIENT
  Age: 16 Year
  Sex: Male
  Weight: 57 kg

DRUGS (4)
  1. GENOTROPIN [Suspect]
     Active Substance: SOMATROPIN
     Indication: GROWTH HORMONE DEFICIENCY
  2. GENOTROPIN [Suspect]
     Active Substance: SOMATROPIN
     Indication: HYPOPITUITARISM
     Dosage: 1.6 MG, DAILY
     Dates: start: 201503
  3. GENOTROPIN [Suspect]
     Active Substance: SOMATROPIN
     Indication: DWARFISM
     Dosage: 3.2 MG, DAILY
     Route: 058
     Dates: start: 201503
  4. GENOTROPIN [Suspect]
     Active Substance: SOMATROPIN
     Indication: BODY HEIGHT BELOW NORMAL
     Dosage: 3 MG, DAILY (7X/WEEK)
     Route: 058
     Dates: start: 201701

REACTIONS (1)
  - Injection site pain [Unknown]
